FAERS Safety Report 8977633 (Version 1)
Quarter: 2012Q4

REPORT INFORMATION
  Report Type: 
  Country: AU (occurrence: AU)
  Receive Date: 20121220
  Receipt Date: 20121220
  Transmission Date: 20130627
  Serious: Yes (Death)
  Sender: FDA-Public Use
  Company Number: AU-GLAXOSMITHKLINE-B0791529A

PATIENT
  Age: 54 Year
  Sex: Female

DRUGS (4)
  1. TYKERB [Suspect]
     Indication: BREAST CANCER METASTATIC
     Route: 065
     Dates: start: 20120209
  2. XELODA [Suspect]
     Indication: BREAST CANCER METASTATIC
     Route: 065
     Dates: start: 20120206
  3. PANADOL [Concomitant]
     Indication: PAIN
  4. PANADEINE FORTE [Concomitant]
     Indication: PAIN

REACTIONS (4)
  - Metastatic neoplasm [Fatal]
  - Rash [Recovering/Resolving]
  - Back pain [Not Recovered/Not Resolved]
  - Swollen tongue [Unknown]
